FAERS Safety Report 19606149 (Version 3)
Quarter: 2023Q2

REPORT INFORMATION
  Report Type: Spontaneous
  Country: JP (occurrence: JP)
  Receive Date: 20210723
  Receipt Date: 20230421
  Transmission Date: 20230721
  Serious: Yes (Hospitalization, Other)
  Sender: FDA-Public Use
  Company Number: JP-KYOWAKIRIN-2020AKK020900

PATIENT
  Age: 15 Year
  Sex: Female

DRUGS (55)
  1. ROMIPLOSTIM [Suspect]
     Active Substance: ROMIPLOSTIM
     Indication: Immune thrombocytopenia
     Dosage: 50 UG, 1X/WEEK
     Route: 058
     Dates: start: 20200401, end: 20200409
  2. ROMIPLOSTIM [Suspect]
     Active Substance: ROMIPLOSTIM
     Indication: Immune thrombocytopenia
     Dosage: 100 UG, 1X/2 WEEKS
     Route: 058
     Dates: start: 20200415, end: 20200428
  3. ROMIPLOSTIM [Suspect]
     Active Substance: ROMIPLOSTIM
     Dosage: 100 UG
     Route: 058
     Dates: start: 20200507, end: 20200507
  4. ROMIPLOSTIM [Suspect]
     Active Substance: ROMIPLOSTIM
     Dosage: 100 UG
     Route: 058
     Dates: start: 20200518, end: 20200518
  5. ROMIPLOSTIM [Suspect]
     Active Substance: ROMIPLOSTIM
     Dosage: 150 UG, 1X/WEEK
     Route: 058
     Dates: start: 20200527, end: 20200604
  6. ROMIPLOSTIM [Suspect]
     Active Substance: ROMIPLOSTIM
     Dosage: 150 UG, 1X/2 WEEKS
     Route: 058
     Dates: start: 20200615, end: 20200627
  7. ROMIPLOSTIM [Suspect]
     Active Substance: ROMIPLOSTIM
     Dosage: 200 UG
     Route: 058
     Dates: start: 20200702, end: 20200702
  8. ROMIPLOSTIM [Suspect]
     Active Substance: ROMIPLOSTIM
     Dosage: 250 UG, 1X/WEEK
     Route: 058
     Dates: start: 20200709, end: 20200924
  9. ROMIPLOSTIM [Suspect]
     Active Substance: ROMIPLOSTIM
     Dosage: 250 UG
     Route: 058
     Dates: start: 20201015, end: 20201015
  10. ROMIPLOSTIM [Suspect]
     Active Substance: ROMIPLOSTIM
     Dosage: IN APR IN X-YEAR STARTED, AND THE DOSE WAS TITRATED
     Route: 058
  11. PREDNISOLONE [Concomitant]
     Active Substance: PREDNISOLONE
     Indication: Product used for unknown indication
     Dosage: 60 MG
     Route: 048
     Dates: start: 201802, end: 201802
  12. PREDNISOLONE [Concomitant]
     Active Substance: PREDNISOLONE
     Dosage: 15 MG
     Route: 048
     Dates: start: 20180809, end: 20180809
  13. PREDNISOLONE [Concomitant]
     Active Substance: PREDNISOLONE
     Dosage: 10 MG
     Route: 048
     Dates: start: 20180813, end: 20180813
  14. PREDNISOLONE [Concomitant]
     Active Substance: PREDNISOLONE
     Dosage: 5 MG
     Route: 048
     Dates: start: 20180823, end: 20180823
  15. PREDNISOLONE [Concomitant]
     Active Substance: PREDNISOLONE
     Dosage: 2.5 MG
     Route: 048
     Dates: start: 20180907, end: 20180907
  16. PREDNISOLONE [Concomitant]
     Active Substance: PREDNISOLONE
     Dosage: 60 MG
     Route: 048
     Dates: start: 20190624, end: 20190624
  17. PREDNISOLONE [Concomitant]
     Active Substance: PREDNISOLONE
     Dosage: 40 MG
     Route: 048
     Dates: start: 20190702, end: 20190702
  18. PREDNISOLONE [Concomitant]
     Active Substance: PREDNISOLONE
     Dosage: 25 MG
     Route: 048
     Dates: start: 20190710, end: 20190710
  19. PREDNISOLONE [Concomitant]
     Active Substance: PREDNISOLONE
     Dosage: 15 MG
     Route: 048
     Dates: start: 20190801, end: 20190801
  20. PREDNISOLONE [Concomitant]
     Active Substance: PREDNISOLONE
     Dosage: 5 MG
     Route: 048
     Dates: start: 20190815, end: 20190815
  21. PREDNISOLONE [Concomitant]
     Active Substance: PREDNISOLONE
     Dosage: 3 MG
     Route: 048
     Dates: start: 20190827, end: 20190827
  22. PREDNISOLONE [Concomitant]
     Active Substance: PREDNISOLONE
     Dosage: 2 MG
     Route: 048
     Dates: start: 20191017, end: 20191017
  23. PREDNISOLONE [Concomitant]
     Active Substance: PREDNISOLONE
     Dosage: 30 MG
     Route: 048
     Dates: start: 20191101, end: 20191101
  24. PREDNISOLONE [Concomitant]
     Active Substance: PREDNISOLONE
     Dosage: 20 MG
     Route: 048
     Dates: start: 20191103, end: 20191103
  25. PREDNISOLONE [Concomitant]
     Active Substance: PREDNISOLONE
     Dosage: 10 MG
     Route: 048
     Dates: start: 20191107, end: 20191107
  26. PREDNISOLONE [Concomitant]
     Active Substance: PREDNISOLONE
     Dosage: 7.5 MG
     Route: 048
     Dates: start: 20191111, end: 20191111
  27. PREDNISOLONE [Concomitant]
     Active Substance: PREDNISOLONE
     Dosage: 10 MG
     Route: 048
     Dates: start: 20191114, end: 20191114
  28. PREDNISOLONE [Concomitant]
     Active Substance: PREDNISOLONE
     Dosage: 30 MG
     Route: 048
     Dates: start: 20191121, end: 20191121
  29. PREDNISOLONE [Concomitant]
     Active Substance: PREDNISOLONE
     Dosage: 20 MG
     Route: 048
     Dates: start: 20191128, end: 20191128
  30. PREDNISOLONE [Concomitant]
     Active Substance: PREDNISOLONE
     Dosage: 15 MG
     Route: 048
     Dates: start: 20191205, end: 20191205
  31. PREDNISOLONE [Concomitant]
     Active Substance: PREDNISOLONE
     Dosage: 10 MG
     Route: 048
     Dates: start: 20191213, end: 20191213
  32. PREDNISOLONE [Concomitant]
     Active Substance: PREDNISOLONE
     Dosage: 8 MG
     Route: 048
     Dates: start: 20200123, end: 20200123
  33. PREDNISOLONE [Concomitant]
     Active Substance: PREDNISOLONE
     Dosage: 40 MG
     Route: 048
     Dates: start: 20200312, end: 20200312
  34. PREDNISOLONE [Concomitant]
     Active Substance: PREDNISOLONE
     Dosage: 30 MG
     Route: 048
     Dates: start: 20200315, end: 20200315
  35. PREDNISOLONE [Concomitant]
     Active Substance: PREDNISOLONE
     Dosage: 20 MG
     Route: 048
     Dates: start: 20200327, end: 20200327
  36. PREDNISOLONE [Concomitant]
     Active Substance: PREDNISOLONE
     Dosage: 15 MG
     Route: 048
     Dates: start: 20200401, end: 20200401
  37. PREDNISOLONE [Concomitant]
     Active Substance: PREDNISOLONE
     Dosage: 10 MG
     Route: 048
     Dates: start: 20200409, end: 20200409
  38. PREDNISOLONE [Concomitant]
     Active Substance: PREDNISOLONE
     Dosage: 8 MG
     Route: 048
     Dates: start: 20200415, end: 20200415
  39. PREDNISOLONE [Concomitant]
     Active Substance: PREDNISOLONE
     Dosage: 4 MG
     Route: 048
     Dates: start: 20200604, end: 20200604
  40. PREDNISOLONE [Concomitant]
     Active Substance: PREDNISOLONE
     Dosage: 60 MG
     Route: 048
     Dates: start: 20200909, end: 20200909
  41. PREDNISOLONE [Concomitant]
     Active Substance: PREDNISOLONE
     Dosage: 40 MG
     Route: 048
     Dates: start: 20200913, end: 20200913
  42. PREDNISOLONE [Concomitant]
     Active Substance: PREDNISOLONE
     Dosage: 30 MG
     Route: 048
     Dates: start: 20200924, end: 20200924
  43. PREDNISOLONE [Concomitant]
     Active Substance: PREDNISOLONE
     Dosage: 60 MG
     Route: 048
     Dates: start: 20200925, end: 20200925
  44. PREDNISOLONE [Concomitant]
     Active Substance: PREDNISOLONE
     Dosage: 40 MG
     Route: 048
     Dates: start: 20200928, end: 20200928
  45. PREDNISOLONE [Concomitant]
     Active Substance: PREDNISOLONE
     Dosage: 60 MG
     Route: 048
     Dates: start: 20201013, end: 20201013
  46. PREDNISOLONE [Concomitant]
     Active Substance: PREDNISOLONE
     Dosage: 1 G
     Route: 048
     Dates: start: 20201015, end: 20201017
  47. PREDNISOLONE [Concomitant]
     Active Substance: PREDNISOLONE
     Dosage: 60 MG
     Route: 048
     Dates: start: 20201018, end: 20201018
  48. PREDNISOLONE [Concomitant]
     Active Substance: PREDNISOLONE
     Dosage: 40 MG
     Route: 048
     Dates: start: 20201022, end: 20201022
  49. PREDNISOLONE [Concomitant]
     Active Substance: PREDNISOLONE
     Dosage: 30 MG
     Route: 048
     Dates: start: 20201029, end: 20201029
  50. PLATELETS [Concomitant]
     Active Substance: HUMAN PLATELET, ALLOGENIC
     Indication: Product used for unknown indication
     Dosage: UNK, USED 2 TIMES
     Route: 065
  51. PLATELETS [Concomitant]
     Active Substance: HUMAN PLATELET, ALLOGENIC
     Dosage: 10 UNK
     Route: 065
     Dates: start: 20190624, end: 20190624
  52. PLATELETS [Concomitant]
     Active Substance: HUMAN PLATELET, ALLOGENIC
     Dosage: 10 UNK
     Route: 065
     Dates: start: 20200909, end: 20200909
  53. PLATELETS [Concomitant]
     Active Substance: HUMAN PLATELET, ALLOGENIC
     Dosage: 10 UNK
     Route: 065
     Dates: start: 20200925, end: 20200925
  54. PLATELETS [Concomitant]
     Active Substance: HUMAN PLATELET, ALLOGENIC
     Dosage: 20 UNK
     Route: 065
     Dates: start: 20201015, end: 20201015
  55. PLATELETS [Concomitant]
     Active Substance: HUMAN PLATELET, ALLOGENIC
     Dosage: 10 UNK
     Route: 065
     Dates: start: 20201017, end: 20201019

REACTIONS (2)
  - Myeloproliferative neoplasm [Recovered/Resolved]
  - Bone marrow myelogram abnormal [Recovering/Resolving]

NARRATIVE: CASE EVENT DATE: 20200929
